FAERS Safety Report 17488892 (Version 1)
Quarter: 2020Q1

REPORT INFORMATION
  Report Type: Report from Study
  Country: None (occurrence: ZA)
  Receive Date: 20200303
  Receipt Date: 20200303
  Transmission Date: 20200409
  Serious: Yes (Hospitalization)
  Sender: FDA-Public Use
  Company Number: ZA-ABBVIE-20K-143-3299917-00

PATIENT
  Age: 8 Month
  Sex: Male

DRUGS (2)
  1. SYNAGIS [Suspect]
     Active Substance: PALIVIZUMAB
     Indication: PREMATURE BABY
  2. SYNAGIS [Suspect]
     Active Substance: PALIVIZUMAB
     Indication: BRONCHOPULMONARY DYSPLASIA
     Dosage: 100 MG
     Route: 065
     Dates: start: 20200207

REACTIONS (2)
  - Pneumonia [Recovering/Resolving]
  - Rhinovirus infection [Recovering/Resolving]

NARRATIVE: CASE EVENT DATE: 20200217
